FAERS Safety Report 6310265-7 (Version None)
Quarter: 2009Q3

REPORT INFORMATION
  Report Type: 
  Country: None (occurrence: None)
  Receive Date: 20090814
  Receipt Date: 20090731
  Transmission Date: 20100115
  Serious: Yes (Other)
  Sender: FDA-Public Use
  Company Number: PHHY2009BR32730

PATIENT
  Age: 70 Year
  Sex: Female
  Weight: 90 kg

DRUGS (4)
  1. VOLTAREN RETARD [Suspect]
     Indication: ARTHRALGIA
     Dosage: 100MG, ONE TABLET DAILY
     Route: 048
  2. VOLTAREN RETARD [Suspect]
     Indication: BONE PAIN
  3. MAXIDEX [Concomitant]
     Dosage: APPLIED FOUR TIMES DAILY
     Dates: start: 20080101
  4. COLLYRIUM [Concomitant]
     Indication: UVEITIS
     Dosage: UNK

REACTIONS (6)
  - DRUG INEFFECTIVE [None]
  - NAUSEA [None]
  - NECK PAIN [None]
  - NERVOUSNESS [None]
  - RETCHING [None]
  - STRESS [None]
